FAERS Safety Report 5573025-0 (Version None)
Quarter: 2007Q4

REPORT INFORMATION
  Report Type: 
  Country: None (occurrence: None)
  Receive Date: 20071214
  Receipt Date: 20071130
  Transmission Date: 20080405
  Serious: Yes (Hospitalization, Other)
  Sender: FDA-Public Use
  Company Number: THYM-11592

PATIENT
  Age: 66 Year
  Sex: Female
  Weight: 67.5 kg

DRUGS (12)
  1. THYMOGLOBULIN [Suspect]
     Indication: RENAL TRANSPLANT
     Dosage: 75 MG QD IV
     Route: 042
     Dates: start: 20070323, end: 20070323
  2. THYMOGLOBULIN [Suspect]
     Indication: RENAL TRANSPLANT
     Dosage: 75 MG QD IV
     Route: 042
     Dates: start: 20070325, end: 20070325
  3. THYMOGLOBULIN [Suspect]
     Indication: RENAL TRANSPLANT
     Dosage: 100 MG QD IV
     Route: 042
     Dates: start: 20070329, end: 20070329
  4. THYMOGLOBULIN [Suspect]
     Indication: RENAL TRANSPLANT
     Dosage: 100 MG QD IV
     Route: 042
     Dates: start: 20070331, end: 20070401
  5. PANTOZOL. MFR: BYK-GULDEN LOMBERG GMBH [Concomitant]
  6. BERLTHYROX. MFR: BERLIN-CHEMIE AG [Concomitant]
  7. RESTEX [Concomitant]
  8. BICANORM [Concomitant]
  9. CIPROBAY. MFR: BAYER [Concomitant]
  10. CELLCEPT. MFR: ROCHE [Concomitant]
  11. PROGRAF [Concomitant]
  12. URBASON. MFR: HOECHST PHARMACEUTICALS, INCORPORATED [Concomitant]

REACTIONS (7)
  - COMPLICATIONS OF TRANSPLANTED KIDNEY [None]
  - ESCHERICHIA INFECTION [None]
  - HAEMODIALYSIS [None]
  - KIDNEY TRANSPLANT REJECTION [None]
  - KLEBSIELLA INFECTION [None]
  - RENAL NECROSIS [None]
  - TREATMENT FAILURE [None]
